FAERS Safety Report 19767781 (Version 1)
Quarter: 2021Q3

REPORT INFORMATION
  Report Type: Spontaneous
  Country: US (occurrence: US)
  Receive Date: 20210831
  Receipt Date: 20210831
  Transmission Date: 20211014
  Serious: Yes (Disabling)
  Sender: FDA-Public Use
  Company Number: None

PATIENT
  Age: 34 Year
  Sex: Female
  Weight: 58.97 kg

DRUGS (26)
  1. GADOLINIUM CONTRAST FOR MRI [Suspect]
     Active Substance: GADOLINIUM
  2. MAGNESIUM [Concomitant]
     Active Substance: MAGNESIUM
  3. MILK THISTLE [Concomitant]
     Active Substance: DIETARY SUPPLEMENT\HERBALS\MILK THISTLE
  4. OMEGA 6 [Concomitant]
  5. DIGESTIVE ENZYMES [Concomitant]
     Active Substance: UNSPECIFIED INGREDIENT
  6. IODORAL [Concomitant]
     Active Substance: IODINE\POTASSIUM IODIDE
  7. VITAMIN A [Concomitant]
     Active Substance: VITAMIN A
  8. MULTIMINERAL [Concomitant]
  9. QUERCETIN [Concomitant]
     Active Substance: QUERCETIN
  10. BUFFERED C [Concomitant]
  11. B?12 METHYLCOBALAMIN [Concomitant]
  12. FOLATE [Concomitant]
     Active Substance: FOLATE SODIUM
  13. OMEGA 9 [Concomitant]
  14. TUMERIC [Concomitant]
     Active Substance: HERBALS\TURMERIC
  15. PROHANCE [Suspect]
     Active Substance: GADOTERIDOL
  16. MULTI VITAMIN [Concomitant]
     Active Substance: VITAMINS
  17. SELENIUM [Concomitant]
     Active Substance: SELENIUM
  18. DAO ENZYMES [Concomitant]
  19. VITAMIN D3 [Concomitant]
     Active Substance: CHOLECALCIFEROL
  20. LIPOSOMAL GLUTATHIONE [Concomitant]
  21. METHYL B COMPLEX [Concomitant]
  22. SACCHAROMYCES BOULARDI [Concomitant]
  23. ALPHA LIPOIC ACID [Concomitant]
     Active Substance: .ALPHA.-LIPOIC ACID
  24. PROBIOTIC BLEND [Concomitant]
  25. MELATONIN [Concomitant]
     Active Substance: MELATONIN
  26. OMEGA 3 [Concomitant]
     Active Substance: OMEGA-3 FATTY ACIDS

REACTIONS (42)
  - Rash [None]
  - Bone pain [None]
  - Fatigue [None]
  - Amnesia [None]
  - Lip swelling [None]
  - Muscle twitching [None]
  - Immunology test abnormal [None]
  - Bedridden [None]
  - Vomiting [None]
  - Decreased appetite [None]
  - Irritability [None]
  - Gadolinium deposition disease [None]
  - Tremor [None]
  - Skin swelling [None]
  - Sensory disturbance [None]
  - Contrast media reaction [None]
  - Headache [None]
  - Arthralgia [None]
  - Myalgia [None]
  - Renal pain [None]
  - Pain [None]
  - Vertigo [None]
  - Feeling abnormal [None]
  - Skin burning sensation [None]
  - Eye movement disorder [None]
  - Tinnitus [None]
  - Anxiety [None]
  - Oedema [None]
  - Lymphadenopathy [None]
  - Palpitations [None]
  - Ear pain [None]
  - Alopecia [None]
  - Weight decreased [None]
  - Depression [None]
  - Fear [None]
  - Urticaria [None]
  - Toothache [None]
  - Nausea [None]
  - Dysphemia [None]
  - Musculoskeletal chest pain [None]
  - Immunodeficiency [None]
  - Thyroid disorder [None]

NARRATIVE: CASE EVENT DATE: 20210422
